FAERS Safety Report 23539839 (Version 1)
Quarter: 2024Q1

REPORT INFORMATION
  Report Type: Spontaneous
  Country: US (occurrence: US)
  Receive Date: 20240219
  Receipt Date: 20240219
  Transmission Date: 20240410
  Serious: No
  Sender: FDA-Public Use
  Company Number: US-TEVA-VS-3142760

PATIENT
  Age: 67 Year
  Sex: Female
  Weight: 92.986 kg

DRUGS (25)
  1. ALBUTEROL SULFATE [Suspect]
     Active Substance: ALBUTEROL SULFATE
     Indication: Product used for unknown indication
     Route: 065
  2. VITAMINS [Concomitant]
     Active Substance: VITAMINS
  3. LOMOTIL [Concomitant]
     Active Substance: ATROPINE SULFATE\DIPHENOXYLATE HYDROCHLORIDE
  4. XARELTO [Concomitant]
     Active Substance: RIVAROXABAN
  5. VITAMIN D2 [Concomitant]
     Active Substance: ERGOCALCIFEROL
  6. IRON [Concomitant]
     Active Substance: IRON
  7. LATANOPROST [Concomitant]
     Active Substance: LATANOPROST
  8. METFORMIN HYDROCHLORIDE [Concomitant]
     Active Substance: METFORMIN HYDROCHLORIDE
  9. OXYGEN [Concomitant]
     Active Substance: OXYGEN
  10. AZITHROMYCIN [Concomitant]
     Active Substance: AZITHROMYCIN
  11. SYMBICORT [Concomitant]
     Active Substance: BUDESONIDE\FORMOTEROL FUMARATE DIHYDRATE
  12. PEPCID [Concomitant]
     Active Substance: FAMOTIDINE
  13. PRAVASTATIN SODIUM [Concomitant]
     Active Substance: PRAVASTATIN SODIUM
  14. LASIX [Concomitant]
     Active Substance: FUROSEMIDE
  15. Tozinameran (Pfizer BioNTech COVID-19 vaccine) [Concomitant]
  16. TREPROSTINIL [Suspect]
     Active Substance: TREPROSTINIL
     Indication: Pulmonary arterial hypertension
     Route: 055
     Dates: start: 20220720
  17. TREPROSTINIL [Suspect]
     Active Substance: TREPROSTINIL
     Indication: Pulmonary arterial hypertension
     Route: 055
  18. TYVASO DPI [Suspect]
     Active Substance: TREPROSTINIL
     Indication: Pulmonary arterial hypertension
     Route: 055
  19. FISH OIL [Concomitant]
     Active Substance: FISH OIL
  20. ZOLOFT [Concomitant]
     Active Substance: SERTRALINE HYDROCHLORIDE
  21. MELATONIN [Concomitant]
     Active Substance: MELATONIN
  22. VITAMIN C [Concomitant]
     Active Substance: ASCORBIC ACID
  23. TADALAFIL [Concomitant]
     Active Substance: TADALAFIL
  24. TYLENOL [Concomitant]
     Active Substance: ACETAMINOPHEN
  25. DORZOLAMIDE HYDROCHLORIDE [Concomitant]
     Active Substance: DORZOLAMIDE HYDROCHLORIDE

REACTIONS (1)
  - Headache [Unknown]
